FAERS Safety Report 16332264 (Version 1)
Quarter: 2019Q2

REPORT INFORMATION
  Report Type: Spontaneous
  Country: US (occurrence: US)
  Receive Date: 20190517
  Receipt Date: 20190517
  Transmission Date: 20190711
  Serious: Yes (Other)
  Sender: FDA-Public Use
  Company Number: None

PATIENT
  Sex: Female
  Weight: 72.57 kg

DRUGS (1)
  1. NDC 68462-72084 DROSPIRENONE AND ETHINYL ESTRADIOL TABLETS, USP 3 MGL0 [Suspect]
     Active Substance: DROSPIRENONE\ETHINYL ESTRADIOL

REACTIONS (25)
  - Vulvovaginal dryness [None]
  - Hypotension [None]
  - Irritability [None]
  - Product substitution issue [None]
  - Asthma [None]
  - Feeling abnormal [None]
  - Anger [None]
  - Adnexa uteri pain [None]
  - Nausea [None]
  - Blepharospasm [None]
  - Dysmenorrhoea [None]
  - Muscle tightness [None]
  - Myalgia [None]
  - Libido decreased [None]
  - Dizziness [None]
  - Photophobia [None]
  - Dyspareunia [None]
  - Pelvic pain [None]
  - Contact lens intolerance [None]
  - Vision blurred [None]
  - Muscle spasms [None]
  - Aggression [None]
  - Pain in extremity [None]
  - Depression [None]
  - Hostility [None]

NARRATIVE: CASE EVENT DATE: 20190425
